FAERS Safety Report 19765534 (Version 1)
Quarter: 2021Q3

REPORT INFORMATION
  Report Type: Spontaneous
  Country: CN (occurrence: CN)
  Receive Date: 20210830
  Receipt Date: 20210830
  Transmission Date: 20211014
  Serious: Yes (Life-Threatening, Other)
  Sender: FDA-Public Use
  Company Number: CN-PFIZER INC-202101065274

PATIENT
  Age: 51 Year
  Sex: Female
  Weight: 40 kg

DRUGS (1)
  1. ZYVOX [Suspect]
     Active Substance: LINEZOLID
     Indication: BACTERAEMIA
     Dosage: 0.6 G, 2X/DAY
     Route: 041
     Dates: start: 20210811, end: 20210814

REACTIONS (2)
  - Lactic acidosis [Not Recovered/Not Resolved]
  - Delirium [Unknown]

NARRATIVE: CASE EVENT DATE: 20210814
